FAERS Safety Report 9477733 (Version 2)
Quarter: 2013Q3

REPORT INFORMATION
  Report Type: Report from Study
  Country: JP (occurrence: JP)
  Receive Date: 20130827
  Receipt Date: 20130920
  Transmission Date: 20140515
  Serious: Yes (Death, Hospitalization)
  Sender: FDA-Public Use
  Company Number: JP-ROCHE-1265286

PATIENT
  Age: 87 Year
  Sex: Female

DRUGS (2)
  1. METHOXY POLYETHYLENE GLYCOL-EPOETIN BETA [Suspect]
     Indication: NEPHROGENIC ANAEMIA
     Route: 058
     Dates: start: 20121112, end: 20121124
  2. NITRODERM [Concomitant]
     Route: 062
     Dates: end: 20121124

REACTIONS (2)
  - Ventricular fibrillation [Fatal]
  - Cardiac failure [Unknown]
